FAERS Safety Report 6045595-X (Version None)
Quarter: 2009Q1

REPORT INFORMATION
  Report Type: 
  Country: None (occurrence: None)
  Receive Date: 20090121
  Receipt Date: 20090112
  Transmission Date: 20090719
  Serious: Yes (Hospitalization, Other)
  Sender: FDA-Public Use
  Company Number: AU-JNJFOC-20081205373

PATIENT
  Age: 47 Year
  Sex: Female

DRUGS (5)
  1. REMICADE [Suspect]
     Route: 042
  2. REMICADE [Suspect]
     Dosage: 3 INFUSIONS APPROXIMATELY 2 YEARS AGO
     Route: 042
  3. REMICADE [Suspect]
     Indication: CROHN'S DISEASE
     Dosage: 3 INFUSIONS APPROXIMATELY 2 YEARS AGO
     Route: 042
  4. IMMUNOSUPPRESSANT [Concomitant]
  5. AZATHIOPRINE [Concomitant]

REACTIONS (4)
  - FEMALE GENITAL TRACT FISTULA [None]
  - PALPITATIONS [None]
  - SERUM SICKNESS [None]
  - TACHYCARDIA [None]
